FAERS Safety Report 15723223 (Version 4)
Quarter: 2019Q1

REPORT INFORMATION
  Report Type: Spontaneous
  Country: JP (occurrence: JP)
  Receive Date: 20181214
  Receipt Date: 20190226
  Transmission Date: 20190417
  Serious: Yes (Hospitalization, Other)
  Sender: FDA-Public Use
  Company Number: JP-009507513-1812JPN000591J

PATIENT
  Age: 5 Decade
  Sex: Male

DRUGS (2)
  1. PROPECIA [Suspect]
     Active Substance: FINASTERIDE
     Indication: TRICHOTILLOMANIA
     Dosage: UNK
     Route: 048
     Dates: start: 201708
  2. MINOXIDIL. [Suspect]
     Active Substance: MINOXIDIL
     Indication: TRICHOTILLOMANIA
     Dosage: UNK
     Route: 065
     Dates: start: 201708

REACTIONS (1)
  - Pericarditis [Recovered/Resolved]

NARRATIVE: CASE EVENT DATE: 201808
